FAERS Safety Report 6191494-2 (Version None)
Quarter: 2009Q2

REPORT INFORMATION
  Report Type: 
  Country: None (occurrence: None)
  Receive Date: 20090515
  Receipt Date: 20090505
  Transmission Date: 20091009
  Serious: Yes (Other)
  Sender: FDA-Public Use
  Company Number: AU-JNJFOC-20090501415

PATIENT
  Age: 64 Year
  Sex: Female

DRUGS (6)
  1. ACETAMINOPHEN [Suspect]
     Indication: BACK PAIN
  2. ACETAMINOPHEN [Suspect]
     Indication: DRUG USE FOR UNKNOWN INDICATION
  3. METOPROLOL [Concomitant]
  4. FELODIPINE [Concomitant]
  5. SIMVASTATIN [Concomitant]
  6. FLUPHENAZINE [Concomitant]
     Dosage: 25 MG FORTNIGHTLY
     Route: 030

REACTIONS (1)
  - DRUG ERUPTION [None]
